FAERS Safety Report 6440126-4 (Version None)
Quarter: 2009Q4

REPORT INFORMATION
  Report Type: 
  Country: None (occurrence: None)
  Receive Date: 20091113
  Receipt Date: 20090112
  Transmission Date: 20100525
  Serious: No
  Sender: FDA-Public Use
  Company Number: A0763229A

PATIENT
  Age: 45 Year
  Sex: Male

DRUGS (7)
  1. COREG [Suspect]
     Dosage: 25MG TWICE PER DAY
     Route: 048
  2. JANUVIA [Concomitant]
  3. LOVAZA [Concomitant]
  4. LIPITOR [Concomitant]
  5. LISINOPRIL [Concomitant]
  6. PLAVIX [Concomitant]
  7. ASPIRIN [Concomitant]

REACTIONS (4)
  - ANGER [None]
  - BOWEL MOVEMENT IRREGULARITY [None]
  - FLATULENCE [None]
  - PAINFUL DEFAECATION [None]
